FAERS Safety Report 4738614-1 (Version None)
Quarter: 2005Q3

REPORT INFORMATION
  Report Type: 
  Country: None (occurrence: None)
  Receive Date: 20050808
  Receipt Date: 20050808
  Transmission Date: 20060218
  Serious: Yes (Death)
  Sender: FDA-Public Use
  Company Number: None

PATIENT
  Sex: Female
  Weight: 60.3284 kg

DRUGS (4)
  1. TEMOZOLOMIDE [Suspect]
     Indication: GLIOBLASTOMA MULTIFORME
     Dosage: 120MG DAILY  PO
     Route: 048
     Dates: start: 20050609, end: 20050713
  2. WHOLE BRAIN IRRADIATION [Concomitant]
  3. LIPITOR [Concomitant]
  4. LASIX [Concomitant]

REACTIONS (3)
  - BLOOD DISORDER [None]
  - PSEUDOMONAL SEPSIS [None]
  - REFUSAL OF TREATMENT BY RELATIVE [None]
